FAERS Safety Report 23994326 (Version 1)
Quarter: 2024Q2

REPORT INFORMATION
  Report Type: Spontaneous
  Country: US (occurrence: US)
  Receive Date: 20240620
  Receipt Date: 20240620
  Transmission Date: 20240716
  Serious: Yes (Other)
  Sender: FDA-Public Use
  Company Number: US-MYLANLABS-2024M1055740

PATIENT
  Age: 66 Year
  Sex: Female

DRUGS (10)
  1. TACROLIMUS [Suspect]
     Active Substance: TACROLIMUS
     Indication: Cutaneous amyloidosis
     Dosage: UNK
     Route: 061
  2. METHOTREXATE [Suspect]
     Active Substance: METHOTREXATE
     Indication: Cutaneous amyloidosis
     Dosage: UNK
     Route: 048
  3. ACITRETIN [Suspect]
     Active Substance: ACITRETIN
     Indication: Cutaneous amyloidosis
     Dosage: UNK
     Route: 048
  4. CYCLOSPORINE [Suspect]
     Active Substance: CYCLOSPORINE
     Indication: Cutaneous amyloidosis
     Dosage: UNK
     Route: 065
  5. MENTHOL [Suspect]
     Active Substance: MENTHOL
     Indication: Cutaneous amyloidosis
     Dosage: UNK
     Route: 061
  6. PRAMOXINE [Suspect]
     Active Substance: PRAMOXINE
     Indication: Cutaneous amyloidosis
     Dosage: UNK
     Route: 061
  7. HYDROXYCHLOROQUINE [Suspect]
     Active Substance: HYDROXYCHLOROQUINE
     Indication: Cutaneous amyloidosis
     Dosage: UNK
     Route: 048
  8. APREMILAST [Suspect]
     Active Substance: APREMILAST
     Indication: Cutaneous amyloidosis
     Dosage: UNK
     Route: 048
  9. DUPILUMAB [Suspect]
     Active Substance: DUPILUMAB
     Indication: Cutaneous amyloidosis
     Dosage: UNK; INJECTABLE THERAPY
     Route: 065
  10. ETANERCEPT [Suspect]
     Active Substance: ETANERCEPT
     Indication: Cutaneous amyloidosis
     Dosage: UNK; INJECTABLE THERAPY
     Route: 065

REACTIONS (3)
  - Drug ineffective for unapproved indication [Unknown]
  - Off label use [Unknown]
  - Drug intolerance [Unknown]
